FAERS Safety Report 16049229 (Version 1)
Quarter: 2019Q1

REPORT INFORMATION
  Report Type: Spontaneous
  Country: FR (occurrence: FR)
  Receive Date: 20190307
  Receipt Date: 20190307
  Transmission Date: 20190418
  Serious: Yes (Hospitalization, Other)
  Sender: FDA-Public Use
  Company Number: FR-CELGENEUS-FRA-20190301804

PATIENT
  Age: 57 Year
  Sex: Male
  Weight: 110 kg

DRUGS (4)
  1. ISOPROPANOL [Concomitant]
     Active Substance: ISOPROPANOLAMINE
     Indication: PRODUCT USED FOR UNKNOWN INDICATION
     Dosage: 1/2
     Route: 065
  2. TIORFAN [Concomitant]
     Active Substance: RACECADOTRIL
     Indication: DIARRHOEA
     Route: 065
     Dates: start: 20180621
  3. OTEZLA [Suspect]
     Active Substance: APREMILAST
     Route: 048
     Dates: start: 20181109, end: 20181210
  4. OTEZLA [Suspect]
     Active Substance: APREMILAST
     Indication: PSORIASIS
     Route: 048
     Dates: start: 20180615

REACTIONS (1)
  - Drug-induced liver injury [Recovered/Resolved with Sequelae]

NARRATIVE: CASE EVENT DATE: 20180628
